FAERS Safety Report 5703005-3 (Version None)
Quarter: 2008Q2

REPORT INFORMATION
  Report Type: 
  Country: None (occurrence: None)
  Receive Date: 20080408
  Receipt Date: 20080324
  Transmission Date: 20081010
  Serious: Yes (Life-Threatening, Hospitalization, Disabling, Other)
  Sender: FDA-Public Use
  Company Number: 2005S1002702

PATIENT
  Age: 35 Year
  Sex: Female
  Weight: 68.0396 kg

DRUGS (2)
  1. FENTANYL TRANSDERMAL SYSTEM [Suspect]
     Indication: JOINT DISLOCATION
     Dosage: 50 MCG/HR;EVERY 3 DAYS;TRANSDERMAL
     Route: 062
     Dates: start: 20050419, end: 20050401
  2. FENTANYL TRANSDERMAL SYSTEM [Suspect]
     Indication: MUSCULOSKELETAL PAIN
     Dosage: 50 MCG/HR;EVERY 3 DAYS;TRANSDERMAL
     Route: 062
     Dates: start: 20050419, end: 20050401

REACTIONS (13)
  - ASPIRATION [None]
  - BRAIN HYPOXIA [None]
  - BRAIN INJURY [None]
  - BRAIN OEDEMA [None]
  - COGNITIVE DISORDER [None]
  - COMA [None]
  - DYSPNOEA [None]
  - MYOCARDIAL INFARCTION [None]
  - OVERDOSE [None]
  - RESPIRATORY DEPRESSION [None]
  - SPEECH DISORDER [None]
  - UNRESPONSIVE TO STIMULI [None]
  - VOMITING [None]
